FAERS Safety Report 6779159-7 (Version None)
Quarter: 2010Q2

REPORT INFORMATION
  Report Type: 
  Country: None (occurrence: None)
  Receive Date: 20100618
  Receipt Date: 20100608
  Transmission Date: 20101027
  Serious: Yes (Hospitalization)
  Sender: FDA-Public Use
  Company Number: US-ROCHE-682431

PATIENT
  Sex: Male
  Weight: 114.3 kg

DRUGS (10)
  1. BEVACIZUMAB [Suspect]
     Indication: NON-SMALL CELL LUNG CANCER
     Route: 042
     Dates: start: 20100111
  2. BEVACIZUMAB [Suspect]
     Route: 042
     Dates: start: 20100202
  3. PEMETREXED [Suspect]
     Indication: NON-SMALL CELL LUNG CANCER
     Route: 042
     Dates: start: 20100111
  4. CARBOPLATIN [Suspect]
     Indication: NON-SMALL CELL LUNG CANCER
     Route: 042
     Dates: start: 20100111
  5. GLUCOPHAGE [Concomitant]
  6. OMEPRAZOLE [Concomitant]
  7. AVANDIA [Concomitant]
  8. COREG [Concomitant]
  9. AMARYL [Concomitant]
  10. LOTREL [Concomitant]

REACTIONS (2)
  - ANAEMIA [None]
  - HYPOGLYCAEMIA [None]
